FAERS Safety Report 8229278-3 (Version None)
Quarter: 2012Q1

REPORT INFORMATION
  Report Type: 
  Country: None (occurrence: None)
  Receive Date: 20120322
  Receipt Date: 20120312
  Transmission Date: 20120608
  Serious: Yes (Hospitalization)
  Sender: FDA-Public Use
  Company Number: US-ACTELION-A-NJ2012-60713

PATIENT

DRUGS (6)
  1. TRACLEER [Suspect]
     Indication: PULMONARY ARTERIAL HYPERTENSION
     Dosage: UNK
     Route: 048
     Dates: start: 20100218
  2. FOLIC ACID [Concomitant]
  3. ALBUTEROL [Concomitant]
  4. XOPENEX [Concomitant]
  5. LYRICA [Concomitant]
  6. TRAMADOL HCL [Concomitant]

REACTIONS (8)
  - HEADACHE [None]
  - DYSPNOEA [None]
  - FATIGUE [None]
  - COUGH [None]
  - CELLULITIS [None]
  - INTERVERTEBRAL DISC PROTRUSION [None]
  - PULMONARY CONGESTION [None]
  - INFLUENZA [None]
